FAERS Safety Report 7075276-5 (Version None)
Quarter: 2010Q4

REPORT INFORMATION
  Report Type: 
  Country: None (occurrence: None)
  Receive Date: 20101030
  Receipt Date: 20100903
  Transmission Date: 20110411
  Serious: No
  Sender: FDA-Public Use
  Company Number: US-WYE-H16527510

PATIENT
  Age: 60 Year
  Sex: Female
  Weight: 78.09 kg

DRUGS (1)
  1. ADVIL PM [Suspect]
     Indication: INSOMNIA
     Dosage: 1 CAPLET ONE TIME
     Route: 048
     Dates: start: 20100718, end: 20100718

REACTIONS (1)
  - DRUG INEFFECTIVE [None]
